FAERS Safety Report 9456000 (Version 1)
Quarter: 2013Q3

REPORT INFORMATION
  Report Type: Report from Study
  Country: AU (occurrence: AU)
  Receive Date: 20130813
  Receipt Date: 20130813
  Transmission Date: 20140515
  Serious: Yes (Other)
  Sender: FDA-Public Use
  Company Number: AU-PFIZER INC-2013227950

PATIENT
  Age: 13 Year
  Sex: 0

DRUGS (9)
  1. CYCLOPHOSPHAMIDE [Suspect]
     Indication: ANAPLASTIC LARGE CELL LYMPHOMA T- AND NULL-CELL TYPES
     Dosage: UNK
  2. ETOPOSIDE [Suspect]
     Indication: ANAPLASTIC LARGE CELL LYMPHOMA T- AND NULL-CELL TYPES
     Dosage: UNK
  3. VINCRISTINE SULFATE [Suspect]
     Indication: ANAPLASTIC LARGE CELL LYMPHOMA T- AND NULL-CELL TYPES
     Dosage: UNK
  4. ADRIAMYCIN [Suspect]
     Indication: ANAPLASTIC LARGE CELL LYMPHOMA T- AND NULL-CELL TYPES
     Dosage: UNK
  5. PREDNISOLONE [Suspect]
     Indication: ANAPLASTIC LARGE CELL LYMPHOMA T- AND NULL-CELL TYPES
     Dosage: UNK
  6. PREDNISOLONE [Suspect]
     Indication: CHRONIC GRAFT VERSUS HOST DISEASE
  7. BLEOMYCIN [Suspect]
     Indication: ANAPLASTIC LARGE CELL LYMPHOMA T- AND NULL-CELL TYPES
     Dosage: UNK
  8. PROCARBAZINE [Suspect]
     Indication: ANAPLASTIC LARGE CELL LYMPHOMA T- AND NULL-CELL TYPES
     Dosage: UNK
  9. MELPHALAN [Concomitant]
     Indication: STEM CELL TRANSPLANT
     Dosage: UNK

REACTIONS (1)
  - Osteonecrosis [Not Recovered/Not Resolved]
